FAERS Safety Report 9316814 (Version 1)
Quarter: 2012Q4

REPORT INFORMATION
  Report Type: Spontaneous
  Country: US (occurrence: None)
  Receive Date: 20121212
  Receipt Date: 20121212
  Transmission Date: 20130627
  Serious: Yes (Hospitalization)
  Sender: FDA-Public Use
  Company Number: VAL_01174_2012

PATIENT
  Age: 61 Year
  Sex: Male
  Weight: 119 kg

DRUGS (6)
  1. LOPRESSOR [Suspect]
     Indication: PRODUCT USED FOR UNKNOWN INDICATION
     Route: 048
     Dates: start: 20110806, end: 20110819
  2. LOPRESSOR [Suspect]
     Indication: PRODUCT USED FOR UNKNOWN INDICATION
     Dates: start: 20120820
  3. CELLCEPT [Suspect]
     Indication: RENAL TRANSPLANT
     Dosage: BID, Regimen #1 Oral), (Regimen #2 Oral)
     Route: 048
     Dates: start: 20110806, end: 20110818
  4. CELLCEPT [Suspect]
     Indication: RENAL TRANSPLANT
     Route: 048
     Dates: start: 20111022
  5. NORVASC (NOT SPECIFIED) [Suspect]
     Indication: HYPERTENSION
     Dates: start: 20110812, end: 20110819
  6. LANTUS [Concomitant]

REACTIONS (5)
  - Dyspnoea [None]
  - Oedema peripheral [None]
  - Sinus bradycardia [None]
  - Anaemia [None]
  - Metabolic acidosis [None]
